FAERS Safety Report 9826384 (Version 1)
Quarter: 2014Q1

REPORT INFORMATION
  Report Type: Spontaneous
  Country: US (occurrence: None)
  Receive Date: 20140115
  Receipt Date: 20140115
  Transmission Date: 20141002
  Serious: Yes (Hospitalization)
  Sender: FDA-Public Use
  Company Number: FK201400091

PATIENT
  Age: 65 Year
  Sex: Female

DRUGS (5)
  1. BLEOMYCIN [Suspect]
     Indication: HODGKIN^S DISEASE
  2. DOXORUBICIN [Concomitant]
  3. VINBLASTINE [Concomitant]
  4. DACARBAZINE [Concomitant]
  5. PREDNISONE [Concomitant]

REACTIONS (3)
  - Acute lung injury [None]
  - Organising pneumonia [None]
  - Interstitial lung disease [None]
